FAERS Safety Report 4988748-1 (Version None)
Quarter: 2006Q2

REPORT INFORMATION
  Report Type: 
  Country: None (occurrence: None)
  Receive Date: 20060502
  Receipt Date: 20051110
  Transmission Date: 20061013
  Serious: Yes (Hospitalization)
  Sender: FDA-Public Use
  Company Number: US-MERCK-0511USA01903

PATIENT
  Age: 71 Year
  Sex: Female
  Weight: 70 kg

DRUGS (3)
  1. VIOXX [Suspect]
     Indication: ARTHRITIS
     Route: 048
     Dates: start: 20000101, end: 20040501
  2. ESTROGENS (UNSPECIFIED) [Concomitant]
     Route: 065
  3. VITAMINS (UNSPECIFIED) [Concomitant]
     Route: 065

REACTIONS (9)
  - ACUTE MYOCARDIAL INFARCTION [None]
  - AMNESIA [None]
  - BRONCHITIS [None]
  - CORONARY ARTERY DISEASE [None]
  - GASTRIC ULCER [None]
  - HEADACHE [None]
  - HYPOTENSION [None]
  - PANCREATIC DISORDER [None]
  - WEIGHT DECREASED [None]
